FAERS Safety Report 9690877 (Version 2)
Quarter: 2014Q2

REPORT INFORMATION
  Report Type: Report from Study
  Country: MX (occurrence: MX)
  Receive Date: 20131115
  Receipt Date: 20140623
  Transmission Date: 20141212
  Serious: Yes (Other)
  Sender: FDA-Public Use
  Company Number: PHHY2013MX130580

PATIENT
  Age: 53 Year
  Sex: Female

DRUGS (2)
  1. ACLASTA [Suspect]
     Indication: OSTEOPOROSIS
     Dosage: 1 DF (5 MG/100ML), ANNUALLY
     Route: 042
     Dates: start: 20121115
  2. SULFASALAZINE [Concomitant]
     Indication: ARTHRITIS
     Dosage: 2 UKN, DAILY
     Dates: start: 200911

REACTIONS (5)
  - Fall [Unknown]
  - Wrist fracture [Not Recovered/Not Resolved]
  - Movement disorder [Not Recovered/Not Resolved]
  - Malaise [Not Recovered/Not Resolved]
  - Muscular weakness [Not Recovered/Not Resolved]
